FAERS Safety Report 7909470-5 (Version None)
Quarter: 2011Q4

REPORT INFORMATION
  Report Type: 
  Country: None (occurrence: None)
  Receive Date: 20111111
  Receipt Date: 20111109
  Transmission Date: 20120403
  Serious: Yes (Death, Life-Threatening, Hospitalization)
  Sender: FDA-Public Use
  Company Number: IT-AMGEN-UK317447

PATIENT
  Age: 58 Year
  Sex: Male

DRUGS (21)
  1. LIMICAN [Concomitant]
     Indication: NAUSEA
     Dosage: 100 MG, ONE TIME DOSE
     Route: 042
     Dates: start: 20080925, end: 20080925
  2. PANITUMUMAB [Suspect]
     Indication: SQUAMOUS CELL CARCINOMA
     Dosage: 550 MG, Q3WK
     Route: 042
     Dates: start: 20080925, end: 20081016
  3. MAGNESIUM SULFATE [Concomitant]
     Indication: HYPOMAGNESAEMIA
     Dosage: 1 DF, ONE TIME DOSE
     Route: 042
     Dates: start: 20080925, end: 20080925
  4. TORADOL [Concomitant]
     Dosage: 1 DF, PRN
     Route: 030
     Dates: start: 20080925
  5. PIPERACILLIN AND TAZOBACTAM [Concomitant]
     Indication: MUCOSAL INFLAMMATION
     Dosage: 1 DF, BID
     Route: 042
     Dates: start: 20081013, end: 20081019
  6. DURAGESIC-100 [Concomitant]
     Indication: PAIN
     Dosage: 50 MG, BID
     Route: 062
     Dates: start: 20080919
  7. MANNITOL [Concomitant]
     Dosage: 250 ML, ONE TIME DOSE
     Route: 042
     Dates: start: 20080925, end: 20080925
  8. ZANTAC [Concomitant]
     Dosage: 50 MG, ONE TIME DOSE
     Route: 042
     Dates: start: 20080925, end: 20080925
  9. DIFLUCAN [Concomitant]
     Indication: MUCOSAL INFLAMMATION
     Dosage: 1 DF, QD
     Route: 042
     Dates: start: 20081013, end: 20081029
  10. NEXIUM [Concomitant]
     Dosage: 1 DF, QD
     Route: 042
     Dates: start: 20081013
  11. KYTRIL [Concomitant]
     Dosage: 3 MG, ONE TIME DOSE
     Route: 042
     Dates: start: 20080925, end: 20080925
  12. POTASSIUM [Concomitant]
     Indication: HYPOKALAEMIA
     Dosage: UNK UNK, ONE TIME DOSE
     Route: 042
     Dates: start: 20080925, end: 20080925
  13. BETAMETHASONE SODIUM PHOSPHATE [Concomitant]
     Indication: DYSPHAGIA
     Dosage: 4 MG, PRN
     Dates: start: 20080928
  14. OMEPRAZOLE [Concomitant]
     Dosage: 20 MG, QD
     Route: 048
     Dates: start: 20080921, end: 20081012
  15. MYCOSTATIN [Concomitant]
     Indication: MUCOSAL INFLAMMATION
     Dosage: 1 UNIT, TID
     Route: 048
     Dates: start: 20081001, end: 20081013
  16. OLICLINOMEL [Concomitant]
     Indication: MEDICAL DIET
     Dosage: UNK
     Route: 042
     Dates: start: 20081011
  17. RADIATION THERAPY [Concomitant]
  18. TAD [Concomitant]
     Indication: NEUROPATHY PERIPHERAL
     Dosage: 2500 MG, ONE TIME DOSE
     Route: 042
     Dates: start: 20080925, end: 20080925
  19. LIMICAN [Concomitant]
     Indication: VOMITING
  20. KETOROLAC TROMETHAMINE [Concomitant]
     Indication: PAIN
     Dosage: 1 DF, PRN
     Route: 030
     Dates: start: 20080919
  21. OXYCONTIN [Concomitant]
     Indication: PAIN
     Dosage: 20 MG, PRN
     Route: 048
     Dates: start: 20081003, end: 20081013

REACTIONS (7)
  - LOSS OF CONSCIOUSNESS [None]
  - VESSEL PERFORATION [None]
  - HAEMORRHAGE [None]
  - HYPOTENSION [None]
  - SHOCK HAEMORRHAGIC [None]
  - CIRCULATORY COLLAPSE [None]
  - GENERAL PHYSICAL HEALTH DETERIORATION [None]
